FAERS Safety Report 10723929 (Version 1)
Quarter: 2015Q1

REPORT INFORMATION
  Report Type: Spontaneous
  Country: US (occurrence: None)
  Receive Date: 20150115
  Receipt Date: 20150115
  Transmission Date: 20150721
  Serious: Yes (Other)
  Sender: FDA-Public Use
  Company Number: 2014-US-015425

PATIENT
  Age: 29 Year
  Sex: Female

DRUGS (1)
  1. XYREM [Suspect]
     Active Substance: SODIUM OXYBATE
     Indication: SLEEP DISORDER
     Route: 048
     Dates: start: 201410, end: 2014

REACTIONS (9)
  - Suicidal ideation [None]
  - Poor quality sleep [None]
  - Diarrhoea [None]
  - Bipolar disorder [None]
  - Feeling abnormal [None]
  - Off label use [None]
  - Anxiety [None]
  - Depression [None]
  - Migraine [None]

NARRATIVE: CASE EVENT DATE: 2014
